FAERS Safety Report 5822464-9 (Version None)
Quarter: 2008Q3

REPORT INFORMATION
  Report Type: 
  Country: None (occurrence: None)
  Receive Date: 20080725
  Receipt Date: 20080206
  Transmission Date: 20090109
  Serious: No
  Sender: FDA-Public Use
  Company Number: US-AMGEN-KDL264567

PATIENT
  Sex: Male
  Weight: 79.9 kg

DRUGS (2)
  1. PROCRIT [Suspect]
     Indication: ANAEMIA OF MALIGNANT DISEASE
     Route: 058
     Dates: start: 20080117
  2. UNSPECIFIED MEDICATION [Concomitant]

REACTIONS (1)
  - ABDOMINAL PAIN LOWER [None]
